FAERS Safety Report 6686762-1 (Version None)
Quarter: 2010Q2

REPORT INFORMATION
  Report Type: 
  Country: None (occurrence: None)
  Receive Date: 20100419
  Receipt Date: 20100407
  Transmission Date: 20101027
  Serious: Yes (Hospitalization, Disabling, Other)
  Sender: FDA-Public Use
  Company Number: US-MERCK-1002USA00784

PATIENT
  Age: 50 Year
  Sex: Female

DRUGS (3)
  1. FOSAMAX [Suspect]
     Indication: OSTEOPOROSIS
     Route: 048
     Dates: start: 20010601, end: 20090321
  2. FOSAMAX [Suspect]
     Route: 048
     Dates: start: 20090507
  3. FOSAMAX [Suspect]
     Route: 048
     Dates: start: 19980101, end: 20090501

REACTIONS (72)
  - ADENOIDAL DISORDER [None]
  - ANAEMIA POSTOPERATIVE [None]
  - ANORGASMIA [None]
  - ANTERIOR CHAMBER DISORDER [None]
  - ANXIETY DISORDER [None]
  - APPENDIX DISORDER [None]
  - ARTHRALGIA [None]
  - ASTHMA [None]
  - BACK PAIN [None]
  - BONE DENSITY DECREASED [None]
  - BONE PAIN [None]
  - BRONCHITIS [None]
  - CARDIAC DISORDER [None]
  - CHEST PAIN [None]
  - CONCUSSION [None]
  - CYST REMOVAL [None]
  - DEPRESSION [None]
  - DERMATITIS CONTACT [None]
  - DRUG HYPERSENSITIVITY [None]
  - DRUG INTOLERANCE [None]
  - DYSURIA [None]
  - EPISTAXIS [None]
  - EYE IRRITATION [None]
  - FALL [None]
  - FATIGUE [None]
  - FEMUR FRACTURE [None]
  - FIBROMYALGIA [None]
  - FLUID RETENTION [None]
  - GALLBLADDER DISORDER [None]
  - HAEMATOMA [None]
  - HYPERLIPIDAEMIA [None]
  - HYPERTENSION [None]
  - INTERVERTEBRAL DISC DEGENERATION [None]
  - INTERVERTEBRAL DISC PROTRUSION [None]
  - JOINT CREPITATION [None]
  - JOINT EFFUSION [None]
  - LEFT VENTRICULAR HYPERTROPHY [None]
  - LEUKOPLAKIA [None]
  - LIMB DISCOMFORT [None]
  - LUMBAR VERTEBRAL FRACTURE [None]
  - MEMORY IMPAIRMENT [None]
  - MUSCLE ATROPHY [None]
  - MUSCULOSKELETAL CHEST PAIN [None]
  - MYELITIS [None]
  - NECK INJURY [None]
  - NEPHROLITHIASIS [None]
  - OBESITY [None]
  - OEDEMA [None]
  - OEDEMA PERIPHERAL [None]
  - ORAL HAIRY LEUKOPLAKIA [None]
  - ORAL HERPES [None]
  - ORAL LICHEN PLANUS [None]
  - OSTEOARTHRITIS [None]
  - OSTEOPENIA [None]
  - OSTEOPOROSIS [None]
  - PAIN IN EXTREMITY [None]
  - PHLEBOLITH [None]
  - PRURITUS [None]
  - RHINITIS ALLERGIC [None]
  - ROAD TRAFFIC ACCIDENT [None]
  - SEXUAL DYSFUNCTION [None]
  - SINUS DISORDER [None]
  - SKELETAL INJURY [None]
  - SKIN DISORDER [None]
  - SKIN LESION [None]
  - SPINAL DISORDER [None]
  - SYNOVIAL CYST [None]
  - TONSILLAR DISORDER [None]
  - URINARY TRACT INFECTION [None]
  - UTERINE DISORDER [None]
  - VENTRICULAR DYSFUNCTION [None]
  - WHIPLASH INJURY [None]
